FAERS Safety Report 18324628 (Version 2)
Quarter: 2021Q1

REPORT INFORMATION
  Report Type: Other
  Country: US (occurrence: US)
  Receive Date: 20200929
  Receipt Date: 20210223
  Transmission Date: 20210419
  Serious: Yes (Other)
  Sender: FDA-Public Use
  Company Number: US-ROCHE-2685357

PATIENT
  Sex: Female

DRUGS (1)
  1. OCREVUS [Suspect]
     Active Substance: OCRELIZUMAB
     Indication: RELAPSING MULTIPLE SCLEROSIS
     Dosage: DAY 1: INFUSE 300 MG IV; DAY 15: INFUSE 300 MG IV; INFUSE 600 MG IV EVERY SIX MONTHS?MOST RECENT DOS
     Route: 042
     Dates: start: 20180629

REACTIONS (1)
  - Infection [Unknown]
